FAERS Safety Report 6782471-9 (Version None)
Quarter: 2010Q2

REPORT INFORMATION
  Report Type: 
  Country: None (occurrence: None)
  Receive Date: 20100616
  Receipt Date: 20100610
  Transmission Date: 20101027
  Serious: Yes (Other)
  Sender: FDA-Public Use
  Company Number: 2010SP033137

PATIENT
  Age: 74 Year
  Sex: Female

DRUGS (5)
  1. MIRALAX [Suspect]
     Indication: DRUG USE FOR UNKNOWN INDICATION
     Dosage: 17 GM;QD;PO
     Route: 048
  2. AMITIZA [Concomitant]
  3. ATIVAN [Concomitant]
  4. NORVASC [Concomitant]
  5. MICARDIS [Concomitant]

REACTIONS (1)
  - FAECES DISCOLOURED [None]
